FAERS Safety Report 7258648-5 (Version None)
Quarter: 2011Q1

REPORT INFORMATION
  Report Type: 
  Country: None (occurrence: None)
  Receive Date: 20110129
  Receipt Date: 20100727
  Transmission Date: 20110831
  Serious: No
  Sender: FDA-Public Use
  Company Number: US-ABBOTT-09P-163-0610716-00

PATIENT
  Sex: Female
  Weight: 104.42 kg

DRUGS (10)
  1. SYNTHROID [Concomitant]
     Indication: HYPOTHYROIDISM
  2. IMURAN [Concomitant]
     Indication: RHEUMATOID ARTHRITIS
  3. FAB TAB [Concomitant]
     Indication: RHEUMATOID ARTHRITIS
  4. SINGULAIR [Concomitant]
     Indication: ASTHMA
  5. MUCINEX [Concomitant]
     Indication: HYPERSENSITIVITY
  6. ZYRTEC [Concomitant]
     Indication: HYPERSENSITIVITY
  7. CYMBALTA [Concomitant]
     Indication: DEPRESSION
  8. CYMBALTA [Concomitant]
     Indication: PAIN MANAGEMENT
  9. HUMIRA [Suspect]
     Indication: RHEUMATOID ARTHRITIS
     Dates: start: 20081101
  10. PLAQUENIL [Concomitant]
     Indication: RHEUMATOID ARTHRITIS

REACTIONS (1)
  - SKIN PAPILLOMA [None]
